FAERS Safety Report 5935935-1 (Version None)
Quarter: 2008Q4

REPORT INFORMATION
  Report Type: 
  Country: None (occurrence: None)
  Receive Date: 20081030
  Receipt Date: 20081023
  Transmission Date: 20090506
  Serious: Yes (Hospitalization)
  Sender: FDA-Public Use
  Company Number: US-ELI_LILLY_AND_COMPANY-US200810005694

PATIENT
  Sex: Female

DRUGS (1)
  1. HUMULIN 70/30 [Suspect]
     Dates: start: 19880101

REACTIONS (2)
  - CYSTITIS [None]
  - PULMONARY OEDEMA [None]
